APPROVED DRUG PRODUCT: WYNZORA
Active Ingredient: BETAMETHASONE DIPROPIONATE; CALCIPOTRIENE
Strength: 0.064%;0.005%
Dosage Form/Route: CREAM;TOPICAL
Application: N213422 | Product #001
Applicant: MC2 THERAPEUTICS LTD
Approved: Jul 20, 2020 | RLD: Yes | RS: Yes | Type: RX

PATENTS:
Patent 12440499 | Expires: Mar 18, 2039
Patent 10265265 | Expires: Sep 27, 2027
Patent 11696919 | Expires: Mar 18, 2039